FAERS Safety Report 7911779-6 (Version None)
Quarter: 2011Q4

REPORT INFORMATION
  Report Type: 
  Country: None (occurrence: None)
  Receive Date: 20111114
  Receipt Date: 20111114
  Transmission Date: 20120403
  Serious: Yes (Life-Threatening)
  Sender: FDA-Public Use
  Company Number: None

PATIENT
  Sex: Female
  Weight: 70.306 kg

DRUGS (1)
  1. JUNEL FE 1.5/30 [Suspect]
     Indication: CONTRACEPTION
     Dosage: 1.5MG/30
     Route: 048
     Dates: start: 20100409, end: 20100526

REACTIONS (2)
  - HEADACHE [None]
  - VISUAL IMPAIRMENT [None]
